FAERS Safety Report 19723731 (Version 1)
Quarter: 2021Q3

REPORT INFORMATION
  Report Type: Spontaneous
  Country: MX (occurrence: MX)
  Receive Date: 20210819
  Receipt Date: 20210819
  Transmission Date: 20211014
  Serious: Yes (Other)
  Sender: FDA-Public Use
  Company Number: MX-B.I. PHARMACEUTICALS,INC./RIDGEFIELD-2021-BI-122014

PATIENT
  Sex: Male

DRUGS (2)
  1. CATAPRESAN [Suspect]
     Active Substance: CLONIDINE
     Indication: IMPULSE-CONTROL DISORDER
  2. CATAPRESAN [Suspect]
     Active Substance: CLONIDINE
     Indication: AUTISM SPECTRUM DISORDER
     Route: 065

REACTIONS (4)
  - Drug dependence [Unknown]
  - Product availability issue [Unknown]
  - Off label use [Unknown]
  - Therapeutic response unexpected [Unknown]
